FAERS Safety Report 11081754 (Version 1)
Quarter: 2015Q2

REPORT INFORMATION
  Report Type: Spontaneous
  Country: DE (occurrence: None)
  Receive Date: 20150429
  Receipt Date: 20150429
  Transmission Date: 20150821
  Serious: Yes (Hospitalization)
  Sender: FDA-Public Use
  Company Number: 8021332

PATIENT
  Age: 48 Year
  Sex: Female

DRUGS (2)
  1. NOVOTHYRAL 75 (NOVTHYRAL) (TABLET) (LEVOTHYROXINE SODIUM, LIOTHYRONINE SODIUM) [Suspect]
     Active Substance: LEVOTHYROXINE SODIUM\LIOTHYRONINE SODIUM
     Indication: PRODUCT USED FOR UNKNOWN INDICATION
     Dosage: 0.5 DF?
  2. EUTHYROX [Suspect]
     Active Substance: LEVOTHYROXINE SODIUM
     Indication: THYROIDECTOMY
     Dosage: 1 DF, ORAL
     Dates: start: 201408

REACTIONS (6)
  - Limb discomfort [None]
  - Condition aggravated [None]
  - Arthropathy [None]
  - Urticaria chronic [None]
  - Food intolerance [None]
  - Hypothyroidism [None]

NARRATIVE: CASE EVENT DATE: 201410
